FAERS Safety Report 25931784 (Version 1)
Quarter: 2025Q4

REPORT INFORMATION
  Report Type: Report from Study
  Country: EU (occurrence: EU)
  Receive Date: 20251016
  Receipt Date: 20251016
  Transmission Date: 20260118
  Serious: Yes (Other)
  Sender: MYLAN
  Company Number: EU-GSK-FR2025GSK063395

PATIENT
  Age: 75 Year
  Sex: Female

DRUGS (12)
  1. PACLITAXEL [Suspect]
     Active Substance: PACLITAXEL
     Indication: Endometrial cancer recurrent
     Dosage: UNK
  2. PACLITAXEL [Suspect]
     Active Substance: PACLITAXEL
     Dosage: UNK
     Route: 042
  3. PACLITAXEL [Suspect]
     Active Substance: PACLITAXEL
     Dosage: UNK
     Route: 042
  4. PACLITAXEL [Suspect]
     Active Substance: PACLITAXEL
     Dosage: UNK
  5. CARBOPLATIN [Suspect]
     Active Substance: CARBOPLATIN
     Indication: Endometrial cancer recurrent
     Dosage: UNK
  6. CARBOPLATIN [Suspect]
     Active Substance: CARBOPLATIN
     Dosage: UNK
     Route: 042
  7. CARBOPLATIN [Suspect]
     Active Substance: CARBOPLATIN
     Dosage: UNK
     Route: 042
  8. CARBOPLATIN [Suspect]
     Active Substance: CARBOPLATIN
     Dosage: UNK
  9. DOSTARLIMAB [Suspect]
     Active Substance: DOSTARLIMAB
     Indication: Endometrial cancer recurrent
     Dosage: 500 MILLIGRAM
  10. DOSTARLIMAB [Suspect]
     Active Substance: DOSTARLIMAB
     Dosage: 500 MILLIGRAM
     Route: 042
  11. DOSTARLIMAB [Suspect]
     Active Substance: DOSTARLIMAB
     Dosage: 500 MILLIGRAM
     Route: 042
  12. DOSTARLIMAB [Suspect]
     Active Substance: DOSTARLIMAB
     Dosage: 500 MILLIGRAM

REACTIONS (6)
  - Neurotoxicity [Not Recovered/Not Resolved]
  - Intermenstrual bleeding [Not Recovered/Not Resolved]
  - Hysterectomy [Unknown]
  - Fatigue [Recovering/Resolving]
  - Alopecia [Not Recovered/Not Resolved]
  - Asthenia [Not Recovered/Not Resolved]

NARRATIVE: CASE EVENT DATE: 20250401
